FAERS Safety Report 18281134 (Version 1)
Quarter: 2020Q3

REPORT INFORMATION
  Report Type: Spontaneous
  Country: FR (occurrence: FR)
  Receive Date: 20200918
  Receipt Date: 20200918
  Transmission Date: 20201103
  Serious: Yes (Hospitalization, Other)
  Sender: FDA-Public Use
  Company Number: FR-GLAXOSMITHKLINE-FR2020184339

PATIENT
  Age: 86 Year
  Sex: Female

DRUGS (3)
  1. DIGOXINE NATIVELLE [Interacting]
     Active Substance: DIGOXIN
     Indication: CARDIAC FAILURE
     Dosage: 1 DF
     Route: 048
  2. BISOCE [Interacting]
     Active Substance: BISOPROLOL
     Indication: CARDIAC FAILURE
     Dosage: 5 MG
     Route: 048
  3. ZOVIRAX [Suspect]
     Active Substance: ACYCLOVIR
     Indication: HERPES ZOSTER
     Dosage: 200 MG
     Route: 048
     Dates: start: 20200816

REACTIONS (4)
  - Acute kidney injury [Recovered/Resolved]
  - Sinus bradycardia [Recovered/Resolved]
  - Drug interaction [Unknown]
  - Oliguria [Recovered/Resolved]

NARRATIVE: CASE EVENT DATE: 20200817
